FAERS Safety Report 11373398 (Version 1)
Quarter: 2015Q3

REPORT INFORMATION
  Report Type: Spontaneous
  Country: US (occurrence: US)
  Receive Date: 20150811
  Receipt Date: 20150811
  Transmission Date: 20151125
  Serious: No
  Sender: FDA-Public Use
  Company Number: US-ELI_LILLY_AND_COMPANY-US201208009263

PATIENT
  Age: 62 Year
  Sex: Male
  Weight: 77.1 kg

DRUGS (2)
  1. CIALIS [Suspect]
     Active Substance: TADALAFIL
     Indication: ERECTILE DYSFUNCTION
     Dosage: 5 MG, QD
  2. FISH OIL [Concomitant]
     Active Substance: FISH OIL

REACTIONS (1)
  - Heart rate irregular [Recovered/Resolved]
